FAERS Safety Report 10196109 (Version 1)
Quarter: 2014Q2

REPORT INFORMATION
  Report Type: Spontaneous
  Country: US (occurrence: US)
  Receive Date: 20140527
  Receipt Date: 20140527
  Transmission Date: 20141212
  Serious: Yes (Hospitalization)
  Sender: FDA-Public Use
  Company Number: US-JNJFOC-20140508906

PATIENT
  Sex: 0

DRUGS (1)
  1. UNSPECIFIED FENTANYL PATCH [Suspect]
     Indication: PAIN
     Route: 062

REACTIONS (3)
  - Investigation [Unknown]
  - Hyperhidrosis [Unknown]
  - Product quality issue [Unknown]
